FAERS Safety Report 13168295 (Version 1)
Quarter: 2017Q1

REPORT INFORMATION
  Report Type: Spontaneous
  Country: US (occurrence: US)
  Receive Date: 20170131
  Receipt Date: 20170131
  Transmission Date: 20170428
  Serious: Yes (Hospitalization)
  Sender: FDA-Public Use
  Company Number: US-SA-2017SA014868

PATIENT
  Age: 42 Year
  Sex: Male

DRUGS (6)
  1. VANCOMYCIN [Concomitant]
     Active Substance: VANCOMYCIN
  2. MELPHALAN [Suspect]
     Active Substance: MELPHALAN
     Route: 065
  3. AZITHROMYCIN ANHYDROUS. [Concomitant]
     Active Substance: AZITHROMYCIN ANHYDROUS
  4. TAZOBACTAM/PIPERACILLIN [Concomitant]
  5. FLUDARABINE PHOSPHATE. [Suspect]
     Active Substance: FLUDARABINE PHOSPHATE
     Route: 065
  6. THIOTEPA. [Suspect]
     Active Substance: THIOTEPA
     Route: 065

REACTIONS (10)
  - Pyrexia [Recovering/Resolving]
  - Hypotension [Recovering/Resolving]
  - Transaminases increased [Recovering/Resolving]
  - C-reactive protein increased [Recovering/Resolving]
  - Interleukin level increased [Recovering/Resolving]
  - Pleural effusion [Recovering/Resolving]
  - Acute kidney injury [Recovering/Resolving]
  - Cytokine release syndrome [Recovering/Resolving]
  - Tachycardia [Recovering/Resolving]
  - Diarrhoea [Recovering/Resolving]
